FAERS Safety Report 5780033-3 (Version None)
Quarter: 2008Q2

REPORT INFORMATION
  Report Type: 
  Country: None (occurrence: None)
  Receive Date: 20080620
  Receipt Date: 20080613
  Transmission Date: 20081010
  Serious: Yes (Other)
  Sender: FDA-Public Use
  Company Number: GB-ROCHE-570472

PATIENT
  Sex: Female
  Weight: 75.3 kg

DRUGS (2)
  1. ORLISTAT [Suspect]
     Indication: OBESITY
     Dosage: UNIT ENTERED AS MG AS STANDARD UNIT FOR ORLISTAT
     Route: 048
     Dates: start: 20080310, end: 20080601
  2. UNSPECIFIED MEDICATIONS [Concomitant]

REACTIONS (2)
  - BONE NEOPLASM MALIGNANT [None]
  - DIZZINESS [None]
